FAERS Safety Report 5380627-3 (Version None)
Quarter: 2007Q3

REPORT INFORMATION
  Report Type: 
  Country: None (occurrence: None)
  Receive Date: 20070706
  Receipt Date: 20070626
  Transmission Date: 20080115
  Serious: Yes (Hospitalization, Other)
  Sender: FDA-Public Use
  Company Number: DE-ABBOTT-07P-062-0372720-00

PATIENT
  Age: 43 Year
  Sex: Female
  Weight: 49.5 kg

DRUGS (3)
  1. SIBUTRAMINE [Suspect]
     Indication: WEIGHT CONTROL
     Dosage: NOT REPORTED
  2. SIBUTRAMINE [Suspect]
     Dosage: NOT REPORTED
  3. SIBUTRAMINE [Suspect]
     Dosage: NOT REPORTED

REACTIONS (11)
  - AGGRESSION [None]
  - APATHY [None]
  - ATTENTION DEFICIT/HYPERACTIVITY DISORDER [None]
  - DEPRESSION [None]
  - HALLUCINATION, VISUAL [None]
  - JEALOUS DELUSION [None]
  - PERSECUTORY DELUSION [None]
  - PSYCHOTIC DISORDER [None]
  - PYROMANIA [None]
  - REFUSAL OF TREATMENT BY PATIENT [None]
  - SPOUSAL ABUSE [None]
